FAERS Safety Report 25424988 (Version 1)
Quarter: 2025Q2

REPORT INFORMATION
  Report Type: Spontaneous
  Country: US (occurrence: None)
  Receive Date: 20250611
  Receipt Date: 20250611
  Transmission Date: 20250717
  Serious: Yes (Other)
  Sender: FDA-CTU
  Company Number: None

PATIENT
  Age: 75 Year
  Sex: Male

DRUGS (1)
  1. CELECOXIB [Suspect]
     Active Substance: CELECOXIB
     Dosage: FREQUENCY : TWICE A DAY;?
     Route: 048
     Dates: start: 20250505, end: 20250506

REACTIONS (2)
  - Blood creatinine increased [None]
  - Therapy cessation [None]

NARRATIVE: CASE EVENT DATE: 20250506
